FAERS Safety Report 4552693-6 (Version None)
Quarter: 2005Q1

REPORT INFORMATION
  Report Type: 
  Country: None (occurrence: None)
  Receive Date: 20050114
  Receipt Date: 20050107
  Transmission Date: 20050727
  Serious: Yes (Disabling)
  Sender: FDA-Public Use
  Company Number: 200510224GDDC

PATIENT
  Age: 10 Year
  Sex: Female

DRUGS (1)
  1. DERMATOP [Suspect]
     Indication: DERMATITIS DIAPER
     Route: 061
     Dates: start: 19930601

REACTIONS (2)
  - MOVEMENT DISORDER [None]
  - VULVAL DISORDER [None]
